FAERS Safety Report 21818927 (Version 10)
Quarter: 2025Q1

REPORT INFORMATION
  Report Type: Report from Study
  Country: US (occurrence: US)
  Receive Date: 20230104
  Receipt Date: 20250311
  Transmission Date: 20250408
  Serious: Yes (Other)
  Sender: TAKEDA
  Company Number: US-PAREXEL-2021-KAM-US003438

PATIENT
  Age: 55 Year
  Sex: Male
  Weight: 98 kg

DRUGS (44)
  1. GLASSIA [Suspect]
     Active Substance: .ALPHA.1-PROTEINASE INHIBITOR HUMAN
     Indication: Alpha-1 antitrypsin deficiency
     Dosage: UNK UNK, 1/WEEK
     Dates: start: 20171110
  2. GLASSIA [Suspect]
     Active Substance: .ALPHA.1-PROTEINASE INHIBITOR HUMAN
     Dosage: UNK UNK, 1/WEEK
  3. GLASSIA [Suspect]
     Active Substance: .ALPHA.1-PROTEINASE INHIBITOR HUMAN
     Dosage: 60 MILLIGRAM/KILOGRAM, 1/WEEK
  4. DIPHENHYDRAMINE [Concomitant]
     Active Substance: DIPHENHYDRAMINE
  5. NITROSTAT [Concomitant]
     Active Substance: NITROGLYCERIN
  6. VITAMIN D3 [Concomitant]
     Active Substance: CHOLECALCIFEROL
  7. ASPIRIN [Concomitant]
     Active Substance: ASPIRIN
  8. SYMBICORT [Concomitant]
     Active Substance: BUDESONIDE\FORMOTEROL FUMARATE DIHYDRATE
  9. FUROSEMIDE [Concomitant]
     Active Substance: FUROSEMIDE
  10. EPINEPHRINE [Concomitant]
     Active Substance: EPINEPHRINE
  11. SODIUM CHLORIDE [Concomitant]
     Active Substance: SODIUM CHLORIDE
  12. FLUTICASONE PROPIONATE [Concomitant]
     Active Substance: FLUTICASONE PROPIONATE
  13. ZYRTEC [Concomitant]
     Active Substance: CETIRIZINE HYDROCHLORIDE
  14. OMEPRAZOLE [Concomitant]
     Active Substance: OMEPRAZOLE
  15. LANTUS [Concomitant]
     Active Substance: INSULIN GLARGINE
  16. SPIRIVA [Concomitant]
     Active Substance: TIOTROPIUM BROMIDE MONOHYDRATE
  17. DULOXETINE HYDROCHLORIDE [Concomitant]
     Active Substance: DULOXETINE HYDROCHLORIDE
  18. EZETIMIBE [Concomitant]
     Active Substance: EZETIMIBE
  19. GABAPENTIN [Concomitant]
     Active Substance: GABAPENTIN
  20. SYNJARDY XR [Concomitant]
     Active Substance: EMPAGLIFLOZIN\METFORMIN HYDROCHLORIDE
  21. ATENOLOL [Concomitant]
     Active Substance: ATENOLOL
  22. OXYGEN [Concomitant]
     Active Substance: OXYGEN
  23. DOXEPIN [Concomitant]
     Active Substance: DOXEPIN
  24. TRULICITY [Concomitant]
     Active Substance: DULAGLUTIDE
  25. VASCEPA [Concomitant]
     Active Substance: ICOSAPENT ETHYL
  26. VITAMIN C [Concomitant]
     Active Substance: ASCORBIC ACID
  27. PROAIR HFA [Concomitant]
     Active Substance: ALBUTEROL SULFATE
  28. BUSPIRONE HCL [Concomitant]
     Active Substance: BUSPIRONE HYDROCHLORIDE
  29. MONTELUKAST SODIUM [Concomitant]
     Active Substance: MONTELUKAST SODIUM
  30. CRESTOR [Concomitant]
     Active Substance: ROSUVASTATIN CALCIUM
  31. GLIMEPIRIDE [Concomitant]
     Active Substance: GLIMEPIRIDE
  32. HYZAAR [Concomitant]
     Active Substance: HYDROCHLOROTHIAZIDE\LOSARTAN POTASSIUM
  33. LIDOCAINE [Concomitant]
     Active Substance: LIDOCAINE
  34. TYLENOL [Concomitant]
     Active Substance: ACETAMINOPHEN
  35. METFORMIN [Concomitant]
     Active Substance: METFORMIN HYDROCHLORIDE
  36. NOVOLOG [Concomitant]
     Active Substance: INSULIN ASPART
  37. VASERETIC [Concomitant]
     Active Substance: ENALAPRIL MALEATE\HYDROCHLOROTHIAZIDE
  38. AMLODIPINE [Concomitant]
     Active Substance: AMLODIPINE BESYLATE
  39. PROLASTIN [Concomitant]
     Active Substance: .ALPHA.1-PROTEINASE INHIBITOR HUMAN
  40. INVOKANA [Concomitant]
     Active Substance: CANAGLIFLOZIN
  41. PRASUGREL HYDROCHLORIDE [Concomitant]
     Active Substance: PRASUGREL HYDROCHLORIDE
  42. DIPHENHYDRAMINE HYDROCHLORIDE [Concomitant]
     Active Substance: DIPHENHYDRAMINE HYDROCHLORIDE
  43. GLIPIZIDE [Concomitant]
     Active Substance: GLIPIZIDE
  44. PREDNISONE [Concomitant]
     Active Substance: PREDNISONE

REACTIONS (9)
  - Ingrowing nail [Unknown]
  - Localised infection [Unknown]
  - Nasopharyngitis [Unknown]
  - Multiple allergies [Not Recovered/Not Resolved]
  - Sinus congestion [Unknown]
  - Seasonal allergy [Unknown]
  - COVID-19 [Unknown]
  - Discomfort [Unknown]
  - Fatigue [Unknown]

NARRATIVE: CASE EVENT DATE: 20221227
